FAERS Safety Report 10061993 (Version 1)
Quarter: 2014Q2

REPORT INFORMATION
  Report Type: Spontaneous
  Country: US (occurrence: None)
  Receive Date: 20140404
  Receipt Date: 20140404
  Transmission Date: 20141212
  Serious: Yes (Hospitalization)
  Sender: FDA-Public Use
  Company Number: None

PATIENT
  Age: 23 Year
  Sex: Female
  Weight: 43.09 kg

DRUGS (1)
  1. EXJADE [Suspect]
     Route: 048

REACTIONS (1)
  - Thrombosis [None]
